FAERS Safety Report 4879674-7 (Version None)
Quarter: 2006Q1

REPORT INFORMATION
  Report Type: 
  Country: None (occurrence: None)
  Receive Date: 20060113
  Receipt Date: 20060104
  Transmission Date: 20060701
  Serious: Yes (Hospitalization)
  Sender: FDA-Public Use
  Company Number: PHBS2006BE00544

PATIENT
  Age: 50 Year
  Sex: Female

DRUGS (4)
  1. SANDIMMUNE [Suspect]
     Indication: MYELODYSPLASTIC SYNDROME
     Dosage: 150 MG, BID
     Route: 048
     Dates: start: 20050501, end: 20060103
  2. SANDIMMUNE [Suspect]
     Dosage: AMOUNT UNKNOWN
     Route: 048
     Dates: start: 20060104, end: 20060104
  3. BETA BLOCKING AGENTS [Suspect]
  4. ANTIDEPRESSANTS [Suspect]

REACTIONS (5)
  - BLOOD CREATININE INCREASED [None]
  - DRUG LEVEL INCREASED [None]
  - DRUG TOXICITY [None]
  - SOMNOLENCE [None]
  - SUICIDE ATTEMPT [None]
